FAERS Safety Report 12776632 (Version 1)
Quarter: 2016Q3

REPORT INFORMATION
  Report Type: Spontaneous
  Country: US (occurrence: US)
  Receive Date: 20160923
  Receipt Date: 20160923
  Transmission Date: 20161109
  Serious: No
  Sender: FDA-Public Use
  Company Number: US-TARO-2016TAR00699

PATIENT
  Age: 87 Year
  Sex: Female
  Weight: 49.89 kg

DRUGS (15)
  1. COQ 10 [Concomitant]
     Active Substance: UBIDECARENONE
  2. TYLENOL [Concomitant]
     Active Substance: ACETAMINOPHEN
  3. SUCRALFATE. [Concomitant]
     Active Substance: SUCRALFATE
  4. ASPIRIN. [Concomitant]
     Active Substance: ASPIRIN
  5. TRIPLE STRENGTH FISH OIL [Concomitant]
  6. FUROSEMIDE. [Concomitant]
     Active Substance: FUROSEMIDE
  7. SPIRONOLACTONE. [Concomitant]
     Active Substance: SPIRONOLACTONE
  8. RESVERATROL [Concomitant]
     Active Substance: RESVERATROL
  9. COMBIVENT RESPIMAT [Concomitant]
     Active Substance: ALBUTEROL SULFATE\IPRATROPIUM BROMIDE
  10. TRIAMCINOLONE [Concomitant]
     Active Substance: TRIAMCINOLONE
  11. NEXIUM [Concomitant]
     Active Substance: ESOMEPRAZOLE MAGNESIUM
  12. COLLAGEN AND C-SUPER [Concomitant]
  13. OMEGA 3 [Concomitant]
     Active Substance: OMEGA-3 FATTY ACIDS
  14. GNC ULTRA MEGA VITAMINS [Concomitant]
  15. HYDROCORTISONE VALERATE OINTMENT 0.2% [Suspect]
     Active Substance: HYDROCORTISONE VALERATE
     Indication: HAEMORRHOIDS
     Dosage: 1 DOSAGE UNITS, ONCE
     Route: 061
     Dates: start: 201608, end: 201608

REACTIONS (3)
  - Application site pruritus [Recovered/Resolved]
  - Application site pain [Recovered/Resolved]
  - Off label use [Recovered/Resolved]

NARRATIVE: CASE EVENT DATE: 201608
